FAERS Safety Report 7837665 (Version 2)
Quarter: 2012Q4

REPORT INFORMATION
  Report Type: 
  Country: US (occurrence: US)
  Receive Date: 20110302
  Receipt Date: 20121227
  Transmission Date: 20130627
  Serious: Yes (Hospitalization, Other)
  Sender: FDA-Public Use
  Company Number: US-PFIZER INC-2009276397

PATIENT
  Age: 44 Year
  Sex: Female

DRUGS (1)
  1. DILANTIN [Suspect]
     Indication: SEIZURES
     Dosage: 300 mg, daily
     Route: 048
     Dates: start: 20071121, end: 20071226

REACTIONS (1)
  - Stevens-Johnson syndrome [Unknown]
